FAERS Safety Report 13625323 (Version 1)
Quarter: 2017Q2

REPORT INFORMATION
  Report Type: Spontaneous
  Country: US (occurrence: US)
  Receive Date: 20170608
  Receipt Date: 20170608
  Transmission Date: 20170830
  Serious: No
  Sender: FDA-Public Use
  Company Number: US-BAYER-2017-108895

PATIENT

DRUGS (2)
  1. ZYRTEC [Concomitant]
     Active Substance: CETIRIZINE HYDROCHLORIDE
     Dosage: UNK UNK, HS
  2. CLARITIN [Suspect]
     Active Substance: LORATADINE
     Indication: PRODUCT USED FOR UNKNOWN INDICATION
     Dosage: UNK, OM
     Route: 065

REACTIONS (2)
  - Product use in unapproved indication [Unknown]
  - Off label use [Unknown]
